FAERS Safety Report 7777006 (Version 5)
Quarter: 2012Q4

REPORT INFORMATION
  Report Type: 
  Country: US (occurrence: US)
  Receive Date: 20110127
  Receipt Date: 20121203
  Transmission Date: 20130627
  Serious: Yes (Hospitalization, Other)
  Sender: FDA-Public Use
  Company Number: US-ASTRAZENECA-2011SE03359

PATIENT
  Age: 63 Year
  Sex: Female

DRUGS (3)
  1. ARIMIDEX [Suspect]
     Route: 048
  2. TOPROL XL [Suspect]
     Route: 048
  3. CHEMOTHERAPY [Suspect]
     Route: 065

REACTIONS (16)
  - Lung neoplasm malignant [Unknown]
  - Cataract [Unknown]
  - Blindness [Unknown]
  - Breast cancer female [Unknown]
  - Onychomadesis [Unknown]
  - Fall [Unknown]
  - Neoplasm malignant [Unknown]
  - Rib fracture [Unknown]
  - Neuropathy peripheral [Unknown]
  - Lung infection [Unknown]
  - Viral infection [Unknown]
  - Hormone level abnormal [Unknown]
  - Pneumonia [Unknown]
  - Malaise [Unknown]
  - Scar [Unknown]
  - Adverse event [Unknown]
